FAERS Safety Report 6122221-2 (Version None)
Quarter: 2009Q1

REPORT INFORMATION
  Report Type: 
  Country: None (occurrence: None)
  Receive Date: 20090316
  Receipt Date: 20090309
  Transmission Date: 20090719
  Serious: Yes (Life-Threatening, Hospitalization)
  Sender: FDA-Public Use
  Company Number: 2009SP003204

PATIENT
  Age: 4 Year
  Sex: Female

DRUGS (24)
  1. TEMOZOLOMIDE [Suspect]
     Indication: GLIOMA
     Dosage: 55 MG;PO
     Route: 048
     Dates: start: 20090127, end: 20090207
  2. TEMOZOLOMIDE [Suspect]
     Indication: GLIOMA
     Dosage: 55 MG;PO
     Route: 048
     Dates: start: 20090220
  3. TEMOZOLOMIDE [Suspect]
  4. TEMOZOLOMIDE [Suspect]
  5. TEMOZOLOMIDE [Suspect]
  6. DEXAMETHASONE TAB [Suspect]
     Indication: DRUG USE FOR UNKNOWN INDICATION
     Dosage: 2 MG;QD;IV ; 4 MG;QD;IV ; 2 MG;QD;IV ; 2 MG;QD;IV
     Route: 042
     Dates: start: 20090121
  7. DEXAMETHASONE TAB [Suspect]
     Indication: DRUG USE FOR UNKNOWN INDICATION
     Dosage: 2 MG;QD;IV ; 4 MG;QD;IV ; 2 MG;QD;IV ; 2 MG;QD;IV
     Route: 042
     Dates: start: 20090124
  8. DEXAMETHASONE TAB [Suspect]
     Indication: DRUG USE FOR UNKNOWN INDICATION
     Dosage: 2 MG;QD;IV ; 4 MG;QD;IV ; 2 MG;QD;IV ; 2 MG;QD;IV
     Route: 042
     Dates: start: 20090124
  9. DEXAMETHASONE TAB [Suspect]
     Indication: DRUG USE FOR UNKNOWN INDICATION
     Dosage: 2 MG;QD;IV ; 4 MG;QD;IV ; 2 MG;QD;IV ; 2 MG;QD;IV
     Route: 042
     Dates: start: 20090126
  10. RANITIDINE [Concomitant]
  11. COTRIMOXAZOLE [Concomitant]
  12. PARACETAMOL [Concomitant]
  13. ONDANSETRON [Concomitant]
  14. DOMPERIDON /00498201/ [Concomitant]
  15. LACTULOSE [Concomitant]
  16. SODIUM PICOSULFATE [Concomitant]
  17. MIDAZOLAM HCL [Concomitant]
  18. GLYCERIN /01736901/ [Concomitant]
  19. CYCLIZINE [Concomitant]
  20. ACYCLOVIR [Concomitant]
  21. METRONIDAZOL /00012501/ [Concomitant]
  22. CEFTRIAXONE [Concomitant]
  23. OMEPRAZOLE [Concomitant]
  24. MORPHINE [Concomitant]

REACTIONS (2)
  - CAECITIS [None]
  - PNEUMATOSIS INTESTINALIS [None]
